FAERS Safety Report 16735779 (Version 1)
Quarter: 2019Q3

REPORT INFORMATION
  Report Type: Spontaneous
  Country: US (occurrence: US)
  Receive Date: 20190823
  Receipt Date: 20190823
  Transmission Date: 20191005
  Serious: No
  Sender: FDA-Public Use
  Company Number: US-BAYER-2019-156205

PATIENT
  Age: 73 Year
  Sex: Male

DRUGS (1)
  1. BETASERON [Suspect]
     Active Substance: INTERFERON BETA-1B
     Dosage: 0.25 MG, QD
     Route: 058
     Dates: start: 1996

REACTIONS (3)
  - Feeling abnormal [Recovered/Resolved]
  - Inappropriate schedule of product administration [None]
  - Influenza like illness [None]
